FAERS Safety Report 15568936 (Version 2)
Quarter: 2018Q4

REPORT INFORMATION
  Report Type: Report from Study
  Country: None (occurrence: BE)
  Receive Date: 20181031
  Receipt Date: 20181129
  Transmission Date: 20190205
  Serious: Yes (Hospitalization)
  Sender: FDA-Public Use
  Company Number: BE-ABBVIE-17K-013-2147046-00

PATIENT
  Sex: Female

DRUGS (3)
  1. DUODOPA [Suspect]
     Active Substance: CARBIDOPA\LEVODOPA
     Dosage: DOSES CONTINUOUSLY MONITORED AND ADAPTED
     Route: 050
     Dates: start: 20140318, end: 20170329
  2. DUODOPA [Suspect]
     Active Substance: CARBIDOPA\LEVODOPA
     Indication: PARKINSON^S DISEASE
     Dosage: MD=5ML, CD=2.1ML/HR DURING 16HRS EDA=1ML
     Route: 050
     Dates: start: 20140317, end: 20140318
  3. DUODOPA [Suspect]
     Active Substance: CARBIDOPA\LEVODOPA
     Dosage: MD=3ML CD=1.1ML/HR. DURING 16HRS EDA=0.7ML
     Route: 050
     Dates: start: 20170329, end: 20181029

REACTIONS (12)
  - Stoma site candida [Recovering/Resolving]
  - Dyskinesia [Unknown]
  - Stoma site pain [Unknown]
  - Stoma site infection [Not Recovered/Not Resolved]
  - Back pain [Unknown]
  - Escherichia infection [Recovering/Resolving]
  - Embedded device [Recovering/Resolving]
  - Back disorder [Unknown]
  - Restless legs syndrome [Unknown]
  - Stoma site erythema [Not Recovered/Not Resolved]
  - Stoma site discharge [Not Recovered/Not Resolved]
  - Stoma site odour [Not Recovered/Not Resolved]
